FAERS Safety Report 7509951-2 (Version None)
Quarter: 2011Q2

REPORT INFORMATION
  Report Type: 
  Country: None (occurrence: None)
  Receive Date: 20110527
  Receipt Date: 20110516
  Transmission Date: 20111010
  Serious: Yes (Death, Other)
  Sender: FDA-Public Use
  Company Number: PHHY2009EE34870

PATIENT
  Sex: Female

DRUGS (8)
  1. GLEEVEC [Suspect]
     Dosage: 300 MG/DAY
     Route: 048
     Dates: start: 20061107
  2. GLEEVEC [Suspect]
     Dosage: 400 MG/DAY
     Route: 048
     Dates: start: 20070329
  3. GLEEVEC [Suspect]
     Dosage: 800 MG/DAY
     Route: 048
     Dates: start: 20070724
  4. GLEEVEC [Suspect]
     Dosage: 300 MG/DAY
     Route: 048
     Dates: start: 20070313
  5. GLEEVEC [Suspect]
     Dosage: 600 MG/DAY
     Route: 048
     Dates: start: 20070624
  6. GLEEVEC [Suspect]
     Dosage: 300 MG/DAY
     Route: 048
     Dates: start: 20061201, end: 20070301
  7. GLEEVEC [Suspect]
     Indication: CHRONIC MYELOID LEUKAEMIA
     Dosage: 600 MG, DAILY
     Route: 048
     Dates: start: 20060801, end: 20060922
  8. GLEEVEC [Suspect]
     Dosage: 400 MG/DAY
     Route: 048
     Dates: start: 20061116

REACTIONS (9)
  - BONE MARROW FAILURE [None]
  - PRURITUS [None]
  - RASH [None]
  - PANCYTOPENIA [None]
  - NEUTROPENIA [None]
  - ENTEROCOCCAL SEPSIS [None]
  - DEATH [None]
  - CHROMOSOME ANALYSIS ABNORMAL [None]
  - BRONCHITIS [None]
